FAERS Safety Report 10373048 (Version 2)
Quarter: 2014Q3

REPORT INFORMATION
  Report Type: Spontaneous
  Country: US (occurrence: US)
  Receive Date: 20140808
  Receipt Date: 20140808
  Transmission Date: 20150326
  Serious: Yes (Hospitalization, Other)
  Sender: FDA-Public Use
  Company Number: US-BRISTOL-MYERS SQUIBB COMPANY-19951656

PATIENT
  Age: 63 Year
  Sex: Male

DRUGS (6)
  1. GLIPIZIDE. [Concomitant]
     Active Substance: GLIPIZIDE
  2. LASIX [Concomitant]
     Active Substance: FUROSEMIDE
  3. ACETYLSALICYLIC ACID [Concomitant]
     Active Substance: ASPIRIN
  4. PLAVIX [Concomitant]
     Active Substance: CLOPIDOGREL BISULFATE
  5. METOPROLOL [Concomitant]
     Active Substance: METOPROLOL
  6. SPRYCEL [Suspect]
     Active Substance: DASATINIB
     Indication: CHRONIC MYELOID LEUKAEMIA
     Route: 048
     Dates: start: 20131119, end: 20131204

REACTIONS (3)
  - Diarrhoea [Unknown]
  - Dyspnoea [Recovering/Resolving]
  - Arthralgia [Unknown]

NARRATIVE: CASE EVENT DATE: 2013
